FAERS Safety Report 9234156 (Version 2)
Quarter: 2013Q2

REPORT INFORMATION
  Report Type: Spontaneous
  Country: JP (occurrence: JP)
  Receive Date: 20130416
  Receipt Date: 20130515
  Transmission Date: 20140414
  Serious: Yes (Other)
  Sender: FDA-Public Use
  Company Number: JP-BAYER-2013-046596

PATIENT
  Age: 34 Year
  Sex: Female
  Weight: 50 kg

DRUGS (2)
  1. MAGNEVIST [Suspect]
     Indication: NUCLEAR MAGNETIC RESONANCE IMAGING ABDOMINAL
     Dosage: 10 ML, ONCE
     Route: 042
     Dates: start: 20130405, end: 20130405
  2. MAGNEVIST [Suspect]
     Indication: UTERINE LEIOMYOMA

REACTIONS (5)
  - Monoplegia [Recovered/Resolved]
  - Muscular weakness [Recovered/Resolved]
  - Hypoaesthesia [Recovered/Resolved]
  - Injection site extravasation [Not Recovered/Not Resolved]
  - Injection site pain [None]
